FAERS Safety Report 6536762-7 (Version None)
Quarter: 2010Q1

REPORT INFORMATION
  Report Type: 
  Country: None (occurrence: None)
  Receive Date: 20100106
  Receipt Date: 20091216
  Transmission Date: 20100710
  Serious: Yes (Hospitalization)
  Sender: FDA-Public Use
  Company Number: 464715

PATIENT
  Age: 32 Year
  Sex: Female
  Weight: 61 kg

DRUGS (5)
  1. PACLITAXEL [Suspect]
     Indication: METASTATIC MALIGNANT MELANOMA
     Dates: start: 20091117, end: 20091208
  2. PROMETHAZINE [Concomitant]
  3. RANITIDINE [Concomitant]
  4. DEXAMETHASONE [Concomitant]
  5. (TROPISETRON) [Concomitant]

REACTIONS (5)
  - CHEST DISCOMFORT [None]
  - DYSPNOEA [None]
  - INFUSION RELATED REACTION [None]
  - PHOTOPSIA [None]
  - SENSATION OF PRESSURE [None]
